FAERS Safety Report 7040524-4 (Version None)
Quarter: 2010Q4

REPORT INFORMATION
  Report Type: 
  Country: None (occurrence: None)
  Receive Date: 20101008
  Receipt Date: 20101008
  Transmission Date: 20110411
  Serious: Yes (Life-Threatening, Hospitalization, Other)
  Sender: FDA-Public Use
  Company Number: None

PATIENT
  Age: 50 Year
  Sex: Female
  Weight: 47.6277 kg

DRUGS (1)
  1. NEXIUM [Suspect]
     Indication: GASTROOESOPHAGEAL REFLUX DISEASE
     Dosage: 40 MG 1/DAY
     Dates: start: 20100830, end: 20100902

REACTIONS (5)
  - PAIN [None]
  - PALPITATIONS [None]
  - PRURITUS [None]
  - SWELLING FACE [None]
  - URTICARIA [None]
